FAERS Safety Report 10050308 (Version 1)
Quarter: 2014Q1

REPORT INFORMATION
  Report Type: Spontaneous
  Country: US (occurrence: None)
  Receive Date: 20140331
  Receipt Date: 20140331
  Transmission Date: 20141002
  Serious: Yes (Other)
  Sender: FDA-Public Use
  Company Number: None

PATIENT
  Age: 21 Year
  Sex: Female
  Weight: 63.5 kg

DRUGS (1)
  1. HALOPERIDOL [Suspect]
     Indication: ANXIETY
     Route: 048
     Dates: start: 20140321, end: 20140325

REACTIONS (7)
  - Gait disturbance [None]
  - Musculoskeletal stiffness [None]
  - Dysuria [None]
  - Tongue movement disturbance [None]
  - Trismus [None]
  - Movement disorder [None]
  - Tremor [None]
